FAERS Safety Report 16538886 (Version 3)
Quarter: 2019Q4

REPORT INFORMATION
  Report Type: Spontaneous
  Country: US (occurrence: US)
  Receive Date: 20190708
  Receipt Date: 20191210
  Transmission Date: 20200122
  Serious: Yes (Life-Threatening, Other)
  Sender: FDA-Public Use
  Company Number: US-DRREDDYS-USA/USA/19/0111455

PATIENT
  Age: 52 Year
  Sex: Female
  Weight: 55 kg

DRUGS (13)
  1. ROPINIROLE HYDROCHLORIDE XR 2 MG, 4 MG, 6 MG, 8 MG AND 12 MG TABLETS [Suspect]
     Active Substance: ROPINIROLE HYDROCHLORIDE
     Route: 065
  2. CLONAZEPAM. [Suspect]
     Active Substance: CLONAZEPAM
     Indication: PRODUCT USED FOR UNKNOWN INDICATION
     Dosage: AT BEDTIME
     Route: 065
  3. ROTIGOTINE [Suspect]
     Active Substance: ROTIGOTINE
     Indication: PARKINSONISM
     Route: 062
  4. ESCITALOPRAM [Concomitant]
     Active Substance: ESCITALOPRAM OXALATE
     Indication: ANXIETY
     Route: 065
  5. CARBIDOPA/LEVODOPA [Suspect]
     Active Substance: CARBIDOPA\LEVODOPA
     Indication: PARKINSONISM
     Dosage: INCREASED DOSES OF CARBIDOPA/LEVODOPA, NOW 7-10 TABLETS DAILY (CARBIDOPA 25 MG, LEVODOPA 100 MG)
     Route: 048
  6. CARBIDOPA/LEVODOPA [Suspect]
     Active Substance: CARBIDOPA\LEVODOPA
     Dosage: TWO CARBIDOPA/ LEVODOPA PER DAY
     Route: 048
  7. ROPINIROLE HYDROCHLORIDE XR 2 MG, 4 MG, 6 MG, 8 MG AND 12 MG TABLETS [Suspect]
     Active Substance: ROPINIROLE HYDROCHLORIDE
     Dosage: ROPINIROLE XL
     Route: 065
  8. LEVODOPA [Suspect]
     Active Substance: LEVODOPA
     Indication: PARKINSONISM
     Route: 065
  9. LEVODOPA [Suspect]
     Active Substance: LEVODOPA
  10. CARBIDOPA/LEVODOPA [Suspect]
     Active Substance: CARBIDOPA\LEVODOPA
     Dosage: CARBIDOPA/LEVODOPA 25/100, 3 TABLETS DAILY
     Route: 048
  11. ROPINIROLE HYDROCHLORIDE XR 2 MG, 4 MG, 6 MG, 8 MG AND 12 MG TABLETS [Suspect]
     Active Substance: ROPINIROLE HYDROCHLORIDE
     Indication: PARKINSONISM
     Route: 065
  12. ROTIGOTINE [Suspect]
     Active Substance: ROTIGOTINE
     Route: 062
  13. LEVODOPA [Suspect]
     Active Substance: LEVODOPA
     Dosage: MUCH GREATER FREQUENCY
     Route: 065

REACTIONS (14)
  - Panic attack [Recovering/Resolving]
  - Dopamine dysregulation syndrome [Recovering/Resolving]
  - Withdrawal syndrome [Recovering/Resolving]
  - Drug abuse [Recovering/Resolving]
  - Anxiety [Recovering/Resolving]
  - Chest pain [Recovering/Resolving]
  - Hypotension [Recovering/Resolving]
  - Weight decreased [Unknown]
  - Abdominal distension [Recovering/Resolving]
  - Therapeutic response shortened [Unknown]
  - Urinary tract infection [Unknown]
  - Nausea [Recovering/Resolving]
  - Weight increased [Unknown]
  - Drug ineffective [Unknown]
